FAERS Safety Report 14452264 (Version 2)
Quarter: 2018Q1

REPORT INFORMATION
  Report Type: Spontaneous
  Country: BR (occurrence: BR)
  Receive Date: 20180129
  Receipt Date: 20180227
  Transmission Date: 20180509
  Serious: Yes (Other)
  Sender: FDA-Public Use
  Company Number: PHHY2018BR013211

PATIENT
  Sex: Male
  Weight: 57 kg

DRUGS (5)
  1. RITALIN LA [Suspect]
     Active Substance: METHYLPHENIDATE HYDROCHLORIDE
     Indication: NEURODEVELOPMENTAL DISORDER
     Dosage: 1 DF, QD
     Route: 048
     Dates: start: 201712
  2. SYSTANE (HYPROMELLOSE 2910 (4000 MPA.S)) [Concomitant]
     Active Substance: HYPROMELLOSE 2910 (4000 MPA.S)
     Indication: KERATOCONUS
     Dosage: 1 DRP, 5 TIMES A DAY IN EACH EYE
     Route: 047
  3. EPITEGEL [Concomitant]
     Indication: KERATOCONUS
     Dosage: 1 DF, QD
     Route: 047
  4. RITALIN LA [Suspect]
     Active Substance: METHYLPHENIDATE HYDROCHLORIDE
     Indication: LEARNING DISORDER
  5. RESTASIS [Concomitant]
     Active Substance: CYCLOSPORINE
     Indication: KERATOCONUS
     Dosage: 1 DRP, TID IN EACH EYE
     Route: 047

REACTIONS (3)
  - Malaise [Unknown]
  - Balance disorder [Unknown]
  - Drug dependence [Unknown]
